FAERS Safety Report 8823117 (Version 2)
Quarter: 2014Q3

REPORT INFORMATION
  Report Type: Report from Study
  Country: US (occurrence: US)
  Receive Date: 20121003
  Receipt Date: 20140912
  Transmission Date: 20150326
  Serious: Yes (Death, Other)
  Sender: FDA-Public Use
  Company Number: US-ROCHE-1134853

PATIENT
  Sex: Male

DRUGS (14)
  1. AMPHOTERICIN [Concomitant]
     Active Substance: AMPHOTERICIN B
     Dosage: 250ML: 5% DEXTROSE IN WATER (D5W)
     Route: 042
  2. VITAMIN B12 [Concomitant]
     Active Substance: CYANOCOBALAMIN
     Route: 065
  3. PEPCID [Concomitant]
     Active Substance: FAMOTIDINE
     Route: 048
  4. NEUPOGEN [Concomitant]
     Active Substance: FILGRASTIM
     Route: 058
  5. TYLENOL [Concomitant]
     Active Substance: ACETAMINOPHEN
     Route: 065
  6. RITUXAN [Suspect]
     Active Substance: RITUXIMAB
     Indication: B-CELL LYMPHOMA
     Route: 065
     Dates: start: 19980227
  7. QUESTRAN [Concomitant]
     Active Substance: CHOLESTYRAMINE
  8. OS-CAL [Concomitant]
     Route: 048
  9. RITUXAN [Suspect]
     Active Substance: RITUXIMAB
     Indication: LYMPHOMA
  10. FILGRASTIM [Concomitant]
     Active Substance: FILGRASTIM
     Route: 065
  11. BENADRYL [Concomitant]
     Active Substance: DIPHENHYDRAMINE HYDROCHLORIDE
     Indication: PREMEDICATION
     Route: 065
  12. AUGMENTIN [Concomitant]
     Active Substance: AMOXICILLIN\CLAVULANATE POTASSIUM
     Route: 048
  13. LASIX [Concomitant]
     Active Substance: FUROSEMIDE
  14. PYRIDOXINE [Concomitant]
     Active Substance: PYRIDOXINE
     Route: 048

REACTIONS (8)
  - Abdominal pain [Unknown]
  - Tumour necrosis [Unknown]
  - Pyrexia [Unknown]
  - White blood cell count decreased [Unknown]
  - Death [Fatal]
  - Myalgia [Unknown]
  - Malabsorption [Unknown]
  - Chills [Unknown]
